FAERS Safety Report 21651588 (Version 16)
Quarter: 2024Q2

REPORT INFORMATION
  Report Type: Report from Study
  Country: US (occurrence: US)
  Receive Date: 20221128
  Receipt Date: 20240628
  Transmission Date: 20240716
  Serious: Yes (Other)
  Sender: FDA-Public Use
  Company Number: US-002147023-NVSC2022US265022

PATIENT
  Age: 53 Year
  Sex: Female

DRUGS (1)
  1. KESIMPTA [Suspect]
     Active Substance: OFATUMUMAB
     Indication: Multiple sclerosis
     Dosage: UNK, QMO
     Route: 058
     Dates: start: 20191106

REACTIONS (20)
  - Multiple sclerosis relapse [Recovering/Resolving]
  - Musculoskeletal stiffness [Unknown]
  - Cerebrospinal fluid leakage [Unknown]
  - Pain [Unknown]
  - Temperature intolerance [Unknown]
  - Hot flush [Unknown]
  - Night sweats [Unknown]
  - Malaise [Recovered/Resolved]
  - Vomiting [Recovered/Resolved]
  - Hypoaesthesia [Recovered/Resolved]
  - Myalgia [Unknown]
  - Memory impairment [Unknown]
  - Anxiety [Unknown]
  - Nasopharyngitis [Unknown]
  - Fatigue [Unknown]
  - Injection site bruising [Recovered/Resolved]
  - Stress [Unknown]
  - Nervous system disorder [Unknown]
  - Illness [Unknown]
  - Inappropriate schedule of product administration [Unknown]

NARRATIVE: CASE EVENT DATE: 20221106
